FAERS Safety Report 19773706 (Version 1)
Quarter: 2021Q3

REPORT INFORMATION
  Report Type: Spontaneous
  Country: IE (occurrence: IE)
  Receive Date: 20210901
  Receipt Date: 20210901
  Transmission Date: 20211014
  Serious: Yes (Disabling, Other)
  Sender: FDA-Public Use
  Company Number: IE-SUN PHARMACEUTICAL INDUSTRIES LTD-2021RR-309696

PATIENT
  Age: 56 Year
  Sex: Male

DRUGS (6)
  1. ROSUVASTATIN TEVA PHARMA [Suspect]
     Active Substance: ROSUVASTATIN CALCIUM
     Indication: HYPERLIPIDAEMIA
     Dosage: UNK
     Route: 065
  2. ATORVASTATIN [Suspect]
     Active Substance: ATORVASTATIN
     Indication: HYPERLIPIDAEMIA
     Dosage: UNK
     Route: 065
  3. PANTOPRAZOLE TEVA PHARMA [Concomitant]
     Active Substance: PANTOPRAZOLE SODIUM
     Indication: PRODUCT USED FOR UNKNOWN INDICATION
     Dosage: 40 MILLIGRAM, DAILY, TABLETS GASTRO?RESISTANT
     Route: 065
     Dates: start: 20160513, end: 20210722
  4. CANDESARTAN KRKA [Concomitant]
     Active Substance: CANDESARTAN
     Indication: HYPERTENSION
     Dosage: 8 MILLIGRAM, DAILY
     Route: 065
     Dates: start: 20200120, end: 20210722
  5. ATORVASTATIN [Suspect]
     Active Substance: ATORVASTATIN
     Indication: HYPERLIPIDAEMIA
     Dosage: 10 MG AT NIGHT
     Route: 048
     Dates: start: 20210701, end: 20210729
  6. ROSUVASTATIN TEVA PHARMA [Suspect]
     Active Substance: ROSUVASTATIN CALCIUM
     Indication: HYPERLIPIDAEMIA
     Dosage: 10 MG DAILY
     Route: 048
     Dates: start: 20210225, end: 20210621

REACTIONS (2)
  - Blister [Recovered/Resolved]
  - Mouth ulceration [Recovered/Resolved]
